FAERS Safety Report 6898856-6 (Version None)
Quarter: 2010Q3

REPORT INFORMATION
  Report Type: 
  Country: None (occurrence: None)
  Receive Date: 20100802
  Receipt Date: 20071209
  Transmission Date: 20110219
  Serious: No
  Sender: FDA-Public Use
  Company Number: US-PFIZER INC-2007103859

PATIENT
  Sex: Female
  Weight: 68.04 kg

DRUGS (8)
  1. LYRICA [Suspect]
     Indication: NERVE INJURY
     Dates: start: 20070101, end: 20071201
  2. ATENOLOL [Concomitant]
  3. AVALIDE [Concomitant]
  4. LIPITOR [Concomitant]
  5. CITALOPRAM HYDROBROMIDE [Concomitant]
  6. SEROQUEL [Concomitant]
  7. LEVOXYL [Concomitant]
  8. HYTRIN [Concomitant]

REACTIONS (6)
  - DIARRHOEA [None]
  - DISORIENTATION [None]
  - DIZZINESS [None]
  - DRY MOUTH [None]
  - NAUSEA [None]
  - VISION BLURRED [None]
